FAERS Safety Report 26185246 (Version 1)
Quarter: 2025Q4

REPORT INFORMATION
  Report Type: Spontaneous
  Country: EU (occurrence: EU)
  Receive Date: 20251222
  Receipt Date: 20251222
  Transmission Date: 20260118
  Serious: Yes (Hospitalization)
  Sender: TEVA
  Company Number: None

PATIENT
  Age: 15 Year
  Sex: Male
  Weight: 71 kg

DRUGS (3)
  1. METHOTREXATE [Suspect]
     Active Substance: METHOTREXATE
     Indication: Product used for unknown indication
     Dosage: MTX: 900 MG IV + 8200 MG FROM 11/18 TO 11/19
     Route: 042
     Dates: start: 20251118, end: 20251119
  2. METHOTREXATE [Suspect]
     Active Substance: METHOTREXATE
     Indication: Product used for unknown indication
     Dosage: MTX IT: 12 MG ON 2025-11-19, INTRATHECAL
     Route: 065
     Dates: start: 20251119
  3. PURINETHOL [Suspect]
     Active Substance: MERCAPTOPURINE
     Indication: Acute lymphocytic leukaemia
     Route: 048
     Dates: start: 20251118, end: 20251120

REACTIONS (3)
  - Hypertransaminasaemia [Unknown]
  - Stomatitis [Recovering/Resolving]
  - Erythema [Recovering/Resolving]

NARRATIVE: CASE EVENT DATE: 20251122
